FAERS Safety Report 8171878-3 (Version None)
Quarter: 2012Q1

REPORT INFORMATION
  Report Type: 
  Country: None (occurrence: None)
  Receive Date: 20120113
  Receipt Date: 20111018
  Transmission Date: 20120608
  Serious: Yes (Other)
  Sender: FDA-Public Use
  Company Number: 2011S1000086

PATIENT
  Age: 45 Year
  Sex: Male
  Weight: 81.6475 kg

DRUGS (16)
  1. JANUVIA [Concomitant]
  2. TRICOR [Concomitant]
  3. MULTIVITAMIN /00097801/ [Concomitant]
  4. VERAPAMIL [Concomitant]
  5. GLUCOPHAGE [Concomitant]
  6. TYLENOL /000200001/ [Concomitant]
  7. ASPIRIN [Concomitant]
  8. FISH OIL [Concomitant]
  9. LOPRESSOR [Concomitant]
  10. KRYSTEXXA [Suspect]
     Indication: GOUT
     Dosage: X1;IV ; 8 MG X1;IV ; 8 MG;X1;IV ; 8 MG;X1;IV
     Route: 042
     Dates: start: 20111018, end: 20111018
  11. KRYSTEXXA [Suspect]
     Indication: GOUT
     Dosage: X1;IV ; 8 MG X1;IV ; 8 MG;X1;IV ; 8 MG;X1;IV
     Route: 042
     Dates: start: 20110906, end: 20110906
  12. KRYSTEXXA [Suspect]
     Indication: GOUT
     Dosage: X1;IV ; 8 MG X1;IV ; 8 MG;X1;IV ; 8 MG;X1;IV
     Route: 042
     Dates: start: 20110920, end: 20110920
  13. KRYSTEXXA [Suspect]
     Indication: GOUT
     Dosage: X1;IV ; 8 MG X1;IV ; 8 MG;X1;IV ; 8 MG;X1;IV
     Route: 042
     Dates: start: 20111004, end: 20111004
  14. LASIX [Concomitant]
  15. BENADRYL /00945501/ [Concomitant]
  16. SOLU-MEDROL [Concomitant]

REACTIONS (1)
  - INFUSION RELATED REACTION [None]
